FAERS Safety Report 17510590 (Version 1)
Quarter: 2020Q1

REPORT INFORMATION
  Report Type: Report from Study
  Country: JP (occurrence: JP)
  Receive Date: 20200306
  Receipt Date: 20200306
  Transmission Date: 20200409
  Serious: Yes (Hospitalization)
  Sender: FDA-Public Use
  Company Number: JP-ACTELION-A-CH2016-133750

PATIENT
  Age: 19 Year
  Sex: Female

DRUGS (10)
  1. BIOFERMIN R [Concomitant]
     Active Substance: DIETARY SUPPLEMENT\PROBIOTICS
     Indication: PROPHYLAXIS
     Dosage: 1 G, TID
     Route: 048
     Dates: start: 20170413, end: 20170418
  2. TREPROST [Suspect]
     Active Substance: TREPROSTINIL
     Indication: PULMONARY ARTERIAL HYPERTENSION
     Dosage: 1.9-10.4NG/KG/MIN
     Route: 058
     Dates: start: 20161109, end: 20161130
  3. OPSUMIT [Suspect]
     Active Substance: MACITENTAN
     Indication: PULMONARY ARTERIAL HYPERTENSION
     Dosage: 10 MG, QD
     Route: 048
     Dates: start: 20150826
  4. CALONAL [Concomitant]
     Active Substance: ACETAMINOPHEN
     Indication: PROPHYLAXIS
     Dosage: UNK
     Route: 048
     Dates: start: 20170608, end: 20170713
  5. TREPROST [Suspect]
     Active Substance: TREPROSTINIL
     Dosage: 12.8-30NG/KG/MIN
     Route: 058
  6. TREPROST [Suspect]
     Active Substance: TREPROSTINIL
     Dosage: 12.4-20NG/KG/MIN
     Route: 058
     Dates: start: 20170215
  7. TREPROST [Suspect]
     Active Substance: TREPROSTINIL
     Dosage: 10.4 NG/KG, PER MIN
     Route: 058
     Dates: start: 20161130, end: 20170214
  8. ADCIRCA [Concomitant]
     Active Substance: TADALAFIL
     Indication: PULMONARY ARTERIAL HYPERTENSION
     Dosage: 60 MG, QD
     Route: 048
  9. OXYGEN. [Concomitant]
     Active Substance: OXYGEN
     Route: 055
  10. CEFZON [Concomitant]
     Active Substance: CEFDINIR
     Indication: PROPHYLAXIS
     Dosage: 100 MG, TID
     Route: 048
     Dates: start: 20170413, end: 20170418

REACTIONS (17)
  - Urticaria [Recovered/Resolved]
  - Haematochezia [Recovered/Resolved]
  - Anaphylactic reaction [Recovered/Resolved]
  - Skin infection [Recovered/Resolved]
  - Headache [Recovering/Resolving]
  - Infusion site pain [Recovering/Resolving]
  - Subcutaneous abscess [Recovered/Resolved]
  - Infusion site dermatitis [Recovered/Resolved]
  - Dermatitis [Recovered/Resolved]
  - Heart rate increased [Unknown]
  - Brain natriuretic peptide increased [Recovering/Resolving]
  - Gastroenteritis [Recovered/Resolved]
  - Malaise [Recovering/Resolving]
  - Nausea [Recovered/Resolved]
  - Dyspnoea [Recovered/Resolved]
  - Diarrhoea [Recovered/Resolved]
  - Dermatitis atopic [Unknown]

NARRATIVE: CASE EVENT DATE: 20151012
